FAERS Safety Report 6924148-2 (Version None)
Quarter: 2010Q3

REPORT INFORMATION
  Report Type: 
  Country: None (occurrence: None)
  Receive Date: 20100812
  Receipt Date: 20100812
  Transmission Date: 20110219
  Serious: Yes (Hospitalization, Disabling)
  Sender: FDA-Public Use
  Company Number: None

PATIENT
  Age: 48 Year
  Sex: Female
  Weight: 103.8737 kg

DRUGS (14)
  1. ZYVOX [Suspect]
     Indication: WOUND INFECTION BACTERIAL
     Dosage: 600MG Q12 IV
     Route: 042
     Dates: start: 20100718, end: 20100725
  2. LEXAPRO [Suspect]
     Indication: DEPRESSION
     Dosage: 20MG DAILY PO
     Route: 048
     Dates: start: 20100718, end: 20100725
  3. DORIPENEM [Concomitant]
  4. SOMA [Concomitant]
  5. POTASSIUM CHLORIDE [Concomitant]
  6. METHADONE HCL [Concomitant]
  7. LOVENOX [Concomitant]
  8. DUONEB [Concomitant]
  9. FLUCONAZOLE [Concomitant]
  10. ZOSYN [Concomitant]
  11. PROTONIX [Concomitant]
  12. NYSTATIN [Concomitant]
  13. ZOFRAN [Concomitant]
  14. NORCO [Concomitant]

REACTIONS (6)
  - CONVULSION [None]
  - HYPOPHAGIA [None]
  - LETHARGY [None]
  - PYREXIA [None]
  - SEROTONIN SYNDROME [None]
  - TREMOR [None]
